FAERS Safety Report 14632447 (Version 8)
Quarter: 2021Q3

REPORT INFORMATION
  Report Type: Report from Study
  Country: BR (occurrence: BR)
  Receive Date: 20180313
  Receipt Date: 20210909
  Transmission Date: 20211014
  Serious: Yes (Hospitalization, Other)
  Sender: FDA-Public Use
  Company Number: PHHY2017BR138404

PATIENT
  Age: 45 Year
  Sex: Female
  Weight: 92 kg

DRUGS (9)
  1. CYCLOSPORINE. [Suspect]
     Active Substance: CYCLOSPORINE
     Indication: PSORIASIS
     Dosage: UNK
     Route: 065
  2. LOSARTAN. [Suspect]
     Active Substance: LOSARTAN
     Indication: HYPERTENSION
     Dosage: 50 (NOT DETAILED)
     Route: 065
  3. COSENTYX [Suspect]
     Active Substance: SECUKINUMAB
     Indication: PSORIATIC ARTHROPATHY
     Dosage: 300 MG (TWO PENS), QMO
     Route: 058
     Dates: start: 20170302
  4. COSENTYX [Suspect]
     Active Substance: SECUKINUMAB
     Dosage: 300 MG, QMO
     Route: 065
  5. COSENTYX [Suspect]
     Active Substance: SECUKINUMAB
     Dosage: 300 MG, QMO
     Route: 065
     Dates: start: 20200207
  6. COSENTYX [Suspect]
     Active Substance: SECUKINUMAB
     Dosage: 300 MG, QW(WEEKLY DOSES)
     Route: 065
     Dates: start: 2017
  7. DECADRON [Concomitant]
     Active Substance: DEXAMETHASONE
     Dosage: UNK
     Route: 065
  8. COSENTYX [Suspect]
     Active Substance: SECUKINUMAB
     Dosage: 300 MG (TWO PENS), QMO
     Route: 058
     Dates: start: 20190730
  9. COSENTYX [Suspect]
     Active Substance: SECUKINUMAB
     Dosage: 300 MG (TWO PENS), QMO
     Route: 058
     Dates: start: 20170830

REACTIONS (27)
  - Headache [Recovered/Resolved]
  - Lymphadenopathy [Unknown]
  - Hypertension [Recovered/Resolved]
  - Inappropriate schedule of product administration [Unknown]
  - Coronavirus infection [Recovered/Resolved with Sequelae]
  - Fatigue [Not Recovered/Not Resolved]
  - Depression [Recovering/Resolving]
  - Diabetes mellitus [Unknown]
  - Blood pressure increased [Recovered/Resolved]
  - Rebound effect [Unknown]
  - Burning sensation [Unknown]
  - Influenza [Not Recovered/Not Resolved]
  - Feeling abnormal [Recovering/Resolving]
  - Weight increased [Recovering/Resolving]
  - Anxiety [Unknown]
  - Skin discolouration [Unknown]
  - Breast mass [Unknown]
  - Hypersensitivity [Not Recovered/Not Resolved]
  - Rebound psoriasis [Unknown]
  - Inflammation [Unknown]
  - Psoriasis [Unknown]
  - Pain [Unknown]
  - Swelling [Unknown]
  - Rheumatic disorder [Unknown]
  - Blister [Unknown]
  - Pruritus [Unknown]
  - Psoriatic arthropathy [Unknown]

NARRATIVE: CASE EVENT DATE: 20170302
